FAERS Safety Report 10147022 (Version 2)
Quarter: 2014Q2

REPORT INFORMATION
  Report Type: Spontaneous
  Country: IN (occurrence: IN)
  Receive Date: 20140501
  Receipt Date: 20140520
  Transmission Date: 20141212
  Serious: Yes (Death)
  Sender: FDA-Public Use
  Company Number: IN-GLAXOSMITHKLINE-B0990092A

PATIENT
  Age: 40 Year
  Sex: Female

DRUGS (2)
  1. SUPACEF [Suspect]
     Indication: TIBIA FRACTURE
     Route: 042
     Dates: start: 201404, end: 201404
  2. BUPIVACAINE [Concomitant]
     Indication: SPINAL ANAESTHESIA
     Dosage: 2.5ML PER DAY
     Route: 065

REACTIONS (4)
  - Death [Fatal]
  - Speech disorder [Unknown]
  - Unresponsive to stimuli [Unknown]
  - Product quality issue [Unknown]
